FAERS Safety Report 9226402 (Version 3)
Quarter: 2013Q3

REPORT INFORMATION
  Report Type: Spontaneous
  Country: MA (occurrence: MA)
  Receive Date: 20130411
  Receipt Date: 20130729
  Transmission Date: 20140515
  Serious: Yes (Death, Hospitalization)
  Sender: FDA-Public Use
  Company Number: MA-MYLANLABS-2013S1007071

PATIENT
  Age: 61 Year
  Sex: Male

DRUGS (1)
  1. CIPROFLOXACINE [Suspect]
     Indication: PRODUCT USED FOR UNKNOWN INDICATION
     Dates: end: 20130327

REACTIONS (9)
  - Death [Fatal]
  - Adrenal insufficiency [Fatal]
  - Urinary incontinence [Fatal]
  - Speech disorder [Fatal]
  - Arthralgia [Fatal]
  - Myalgia [Fatal]
  - Somnolence [Fatal]
  - Hallucination [Fatal]
  - Decreased appetite [Fatal]
